FAERS Safety Report 11079377 (Version 1)
Quarter: 2015Q2

REPORT INFORMATION
  Report Type: Spontaneous
  Country: FR (occurrence: FR)
  Receive Date: 20150430
  Receipt Date: 20150430
  Transmission Date: 20150821
  Serious: Yes (Other)
  Sender: FDA-Public Use
  Company Number: FR-ASTRAZENECA-2015SE40118

PATIENT
  Age: 527 Month
  Sex: Male

DRUGS (8)
  1. CRESTOR [Suspect]
     Active Substance: ROSUVASTATIN CALCIUM
     Route: 048
     Dates: end: 201410
  2. TRIATEC [Concomitant]
     Active Substance: RAMIPRIL
     Route: 048
  3. EZETROL [Suspect]
     Active Substance: EZETIMIBE
     Route: 048
     Dates: start: 201501, end: 201503
  4. QUESTRAN [Concomitant]
     Active Substance: CHOLESTYRAMINE
     Route: 048
  5. BISOPROLOL [Concomitant]
     Active Substance: BISOPROLOL
     Route: 048
  6. CRESTOR [Suspect]
     Active Substance: ROSUVASTATIN CALCIUM
     Route: 048
     Dates: start: 201411, end: 201411
  7. EZETROL [Suspect]
     Active Substance: EZETIMIBE
     Route: 048
     Dates: end: 201411
  8. KARDEGIC [Concomitant]
     Active Substance: ASPIRIN LYSINE
     Route: 048

REACTIONS (4)
  - Paraesthesia [Unknown]
  - Tendon disorder [Not Recovered/Not Resolved]
  - Myalgia [Not Recovered/Not Resolved]
  - Blood creatine phosphokinase increased [Not Recovered/Not Resolved]

NARRATIVE: CASE EVENT DATE: 201408
